FAERS Safety Report 8054726 (Version 4)
Quarter: 2012Q4

REPORT INFORMATION
  Report Type: 
  Country: JP (occurrence: JP)
  Receive Date: 20110726
  Receipt Date: 20121028
  Transmission Date: 20130627
  Serious: Yes (Hospitalization)
  Sender: FDA-Public Use
  Company Number: JP-JNJFOC-20110709038

PATIENT
  Age: 40 Year
  Sex: Female
  Weight: 55 kg

DRUGS (6)
  1. REMICADE [Suspect]
     Indication: RHEUMATOID ARTHRITIS
     Dosage: 9th infusion
     Route: 042
     Dates: start: 20091022
  2. REMICADE [Suspect]
     Indication: RHEUMATOID ARTHRITIS
     Dosage: infusions 2 to 8, dates and dose unspecified.
     Route: 042
  3. REMICADE [Suspect]
     Indication: RHEUMATOID ARTHRITIS
     Dosage: 1st infusion
     Route: 042
     Dates: start: 20081007
  4. TACROLIMUS [Suspect]
     Indication: POLYMYOSITIS
  5. RHEUMATREX [Concomitant]
     Indication: RHEUMATOID ARTHRITIS
     Route: 065
     Dates: start: 198909, end: 20091027
  6. FOLIAMIN [Concomitant]
     Indication: PROPHYLAXIS
     Route: 065
     Dates: end: 20091029

REACTIONS (2)
  - Polymyositis [Recovering/Resolving]
  - Alopecia [Unknown]
